FAERS Safety Report 16540770 (Version 1)
Quarter: 2019Q3

REPORT INFORMATION
  Report Type: Spontaneous
  Country: US (occurrence: US)
  Receive Date: 20190708
  Receipt Date: 20190708
  Transmission Date: 20191004
  Serious: No
  Sender: FDA-Public Use
  Company Number: US-TEVA-2019-US-1066405

PATIENT
  Sex: Female

DRUGS (4)
  1. LORAZEPAM TABLET [Suspect]
     Active Substance: LORAZEPAM
     Indication: ANXIETY
     Route: 065
     Dates: start: 2015
  2. LORAZEPAM TABLET [Suspect]
     Active Substance: LORAZEPAM
     Indication: BARTONELLOSIS
     Dates: start: 2015
  3. LORAZEPAM TABLET [Suspect]
     Active Substance: LORAZEPAM
     Indication: LYME DISEASE
     Dates: start: 2015
  4. OXYCODONE [Concomitant]
     Active Substance: OXYCODONE
     Route: 065

REACTIONS (11)
  - Restless legs syndrome [Unknown]
  - Product prescribing error [Unknown]
  - Panic reaction [Unknown]
  - Tremor [Unknown]
  - Blood pressure abnormal [Unknown]
  - Gait disturbance [Unknown]
  - Memory impairment [Unknown]
  - Palpitations [Unknown]
  - Feeling drunk [Unknown]
  - Gastrointestinal disorder [Unknown]
  - Product use in unapproved indication [Unknown]

NARRATIVE: CASE EVENT DATE: 20190606
